FAERS Safety Report 19736751 (Version 2)
Quarter: 2021Q3

REPORT INFORMATION
  Report Type: Report from Study
  Country: US (occurrence: US)
  Receive Date: 20210823
  Receipt Date: 20210915
  Transmission Date: 20211014
  Serious: Yes (Hospitalization, Other)
  Sender: FDA-Public Use
  Company Number: US-EISAI MEDICAL RESEARCH-EC-2021-097020

PATIENT
  Age: 72 Year
  Sex: Female

DRUGS (2)
  1. LENVIMA [Suspect]
     Active Substance: LENVATINIB
     Indication: ENDOMETRIAL CANCER
     Route: 048
     Dates: start: 20210708, end: 20210806
  2. KEYTRUDA [Concomitant]
     Active Substance: PEMBROLIZUMAB

REACTIONS (9)
  - Arthralgia [Unknown]
  - Urinary retention [Unknown]
  - Brain oedema [Unknown]
  - Disorganised speech [Recovered/Resolved]
  - Musculoskeletal stiffness [Unknown]
  - Intestinal obstruction [Recovering/Resolving]
  - Hallucination [Unknown]
  - Fatigue [Unknown]
  - Walking aid user [Unknown]

NARRATIVE: CASE EVENT DATE: 20210708
